FAERS Safety Report 23342652 (Version 1)
Quarter: 2023Q4

REPORT INFORMATION
  Report Type: Spontaneous
  Country: CN (occurrence: CN)
  Receive Date: 20231227
  Receipt Date: 20231227
  Transmission Date: 20240110
  Serious: Yes (Hospitalization)
  Sender: FDA-Public Use
  Company Number: CN-002147023-NVSC2023CN239065

PATIENT
  Age: 63 Year
  Sex: Female

DRUGS (5)
  1. TEGRETOL [Suspect]
     Active Substance: CARBAMAZEPINE
     Indication: Partial seizures
     Dosage: 0.2 G, QD
     Route: 048
  2. TEGRETOL [Suspect]
     Active Substance: CARBAMAZEPINE
     Indication: Focal dyscognitive seizures
  3. TEGRETOL [Suspect]
     Active Substance: CARBAMAZEPINE
     Indication: Simple partial seizures
  4. TEGRETOL [Suspect]
     Active Substance: CARBAMAZEPINE
     Indication: Seizure
  5. METRONIDAZOLE [Concomitant]
     Active Substance: METRONIDAZOLE
     Indication: Product used for unknown indication
     Dosage: 0.2 G, TID
     Route: 048

REACTIONS (9)
  - Skin lesion [Recovered/Resolved]
  - Erythema multiforme [Unknown]
  - Erythema [Unknown]
  - Papule [Unknown]
  - Skin exfoliation [Unknown]
  - Pruritus [Unknown]
  - Blister [Unknown]
  - Rash [Unknown]
  - Dermatitis exfoliative [Unknown]
